FAERS Safety Report 10155758 (Version 1)
Quarter: 2014Q2

REPORT INFORMATION
  Report Type: Spontaneous
  Country: US (occurrence: US)
  Receive Date: 20140506
  Receipt Date: 20140506
  Transmission Date: 20141212
  Serious: No
  Sender: FDA-Public Use
  Company Number: US-BAYER-2014-060237

PATIENT
  Age: 68 Year
  Sex: Female
  Weight: 86.17 kg

DRUGS (5)
  1. ALEVE TABLET [Suspect]
     Indication: ANALGESIC THERAPY
     Dosage: 1 DF, PRN
     Route: 048
     Dates: start: 200602
  2. ALEVE TABLET [Interacting]
     Indication: FIBROMYALGIA
  3. ALEVE CAPLET [Interacting]
     Dosage: 1 DF, ONE IN THE MORNING AND OCCASSIONALLY AN ADDITONAL ONE IN THE EVENING
     Route: 048
     Dates: start: 201401, end: 201403
  4. WARFARIN [Concomitant]
  5. CYCLOBENZAPRINE [Concomitant]

REACTIONS (3)
  - Incorrect drug administration duration [None]
  - Drug interaction [None]
  - Intentional product misuse [None]
